FAERS Safety Report 16161538 (Version 1)
Quarter: 2019Q2

REPORT INFORMATION
  Report Type: Spontaneous
  Country: FR (occurrence: FR)
  Receive Date: 20190405
  Receipt Date: 20190405
  Transmission Date: 20190711
  Serious: Yes (Hospitalization, Other)
  Sender: FDA-Public Use
  Company Number: FR-AUROBINDO-AUR-APL-2019-017780

PATIENT

DRUGS (20)
  1. METHOTREXATE. [Suspect]
     Active Substance: METHOTREXATE
     Indication: ACUTE LYMPHOCYTIC LEUKAEMIA
     Dosage: INCONNUE
     Route: 037
     Dates: start: 20180828
  2. METHOTREXATE. [Suspect]
     Active Substance: METHOTREXATE
     Dosage: UNK
     Route: 042
     Dates: start: 20181022
  3. CYCLOPHOSPHAMIDE. [Suspect]
     Active Substance: CYCLOPHOSPHAMIDE
     Indication: ACUTE LYMPHOCYTIC LEUKAEMIA
     Dosage: 1305 MILLIGRAM
     Route: 065
     Dates: start: 20180827
  4. PREDNISONE. [Suspect]
     Active Substance: PREDNISONE
     Indication: ACUTE LYMPHOCYTIC LEUKAEMIA
     Dosage: 100 MILLIGRAM, ONCE A DAY
     Route: 048
     Dates: start: 20180827, end: 20180903
  5. METHYLPREDNISOLONE. [Suspect]
     Active Substance: METHYLPREDNISOLONE
     Indication: ACUTE LYMPHOCYTIC LEUKAEMIA
     Dosage: 40 MILLIGRAM
     Route: 037
     Dates: start: 20180828
  6. DAUNORUBICINE [Suspect]
     Active Substance: DAUNORUBICIN
     Indication: ACUTE LYMPHOCYTIC LEUKAEMIA
     Dosage: 52 MILLIGRAM, ONCE A DAY
     Route: 042
     Dates: start: 20180827
  7. KIDROLASE [Suspect]
     Active Substance: ASPARAGINASE
     Indication: ACUTE LYMPHOCYTIC LEUKAEMIA
     Dosage: 10300 INTERNATIONAL UNIT, EVERY OTHER DAY
     Route: 042
     Dates: start: 20180915, end: 20180919
  8. LEDERFOLINE [Suspect]
     Active Substance: LEUCOVORIN CALCIUM
     Indication: HYPOVITAMINOSIS
     Dosage: 25 MILLIGRAM, EVERY WEEK
     Route: 048
     Dates: start: 201809
  9. CYTARABINE. [Suspect]
     Active Substance: CYTARABINE
     Indication: ACUTE LYMPHOCYTIC LEUKAEMIA
     Dosage: 13200 MILLIGRAM, CYCLICAL
     Route: 042
     Dates: start: 20181005, end: 20181121
  10. GRANOCYTE [Suspect]
     Active Substance: LENOGRASTIM
     Indication: NEUTROPENIA
     Dosage: 265 MILLIGRAM, ONCE A DAY
     Route: 042
     Dates: start: 201810
  11. PREDNISONE. [Suspect]
     Active Substance: PREDNISONE
     Dosage: 105 MILLIGRAM, ONCE A DAY
     Route: 048
     Dates: start: 20190114, end: 20190120
  12. ETOPOSIDE. [Suspect]
     Active Substance: ETOPOSIDE
     Indication: ACUTE LYMPHOCYTIC LEUKAEMIA
     Dosage: 250 MILLIGRAM
     Route: 065
     Dates: start: 20181105
  13. MERCAPTOPURINE. [Suspect]
     Active Substance: MERCAPTOPURINE
     Indication: ACUTE LYMPHOCYTIC LEUKAEMIA
     Dosage: 100 MILLIGRAM
     Route: 048
     Dates: start: 20181023
  14. VINCRISTINE SULFATE. [Suspect]
     Active Substance: VINCRISTINE SULFATE
     Indication: ACUTE LYMPHOCYTIC LEUKAEMIA
     Dosage: 2 MILLIGRAM
     Route: 042
     Dates: start: 20180827
  15. BACTRIM [Suspect]
     Active Substance: SULFAMETHOXAZOLE\TRIMETHOPRIM
     Indication: PROPHYLAXIS
     Dosage: 3 DOSAGE FORM, EVERY WEEK
     Route: 065
     Dates: start: 201809
  16. VALACICLOVIR [Suspect]
     Active Substance: VALACYCLOVIR HYDROCHLORIDE
     Indication: PROPHYLAXIS
     Dosage: 1000 MILLIGRAM, ONCE A DAY
     Route: 048
     Dates: start: 201809
  17. ERWINASE [Suspect]
     Active Substance: ASPARAGINASE ERWINIA CHRYSANTHEMI
     Indication: ACUTE LYMPHOCYTIC LEUKAEMIA
     Dosage: 40000 INTERNATIONAL UNIT, EVERY OTHER DAY
     Route: 041
     Dates: start: 20190121, end: 20190125
  18. TRUXIMA [Suspect]
     Active Substance: RITUXIMAB-ABBS
     Indication: ACUTE LYMPHOCYTIC LEUKAEMIA
     Dosage: 600 MILLIGRAM, TOTAL
     Route: 042
     Dates: start: 20181105, end: 20181105
  19. NOMEGESTROL [Suspect]
     Active Substance: NOMEGESTROL
     Indication: PRODUCT USED FOR UNKNOWN INDICATION
     Dosage: 5 MILLIGRAM, ONCE A DAY
     Route: 048
     Dates: start: 20180926
  20. DEXAMETHASONE. [Suspect]
     Active Substance: DEXAMETHASONE
     Indication: ACUTE LYMPHOCYTIC LEUKAEMIA
     Dosage: 35 MILLIGRAM
     Route: 048
     Dates: start: 20181005, end: 20181121

REACTIONS (1)
  - Type 2 diabetes mellitus [Recovered/Resolved with Sequelae]

NARRATIVE: CASE EVENT DATE: 20190123
